FAERS Safety Report 10264214 (Version 1)
Quarter: 2014Q2

REPORT INFORMATION
  Report Type: Spontaneous
  Country: US (occurrence: None)
  Receive Date: 20140624
  Receipt Date: 20140624
  Transmission Date: 20141212
  Serious: Yes (Hospitalization, Disabling, Other)
  Sender: FDA-Public Use
  Company Number: None

PATIENT
  Age: 29 Year
  Sex: Female
  Weight: 61.24 kg

DRUGS (1)
  1. CIPROFLOXACIN [Suspect]
     Indication: URINARY TRACT INFECTION
     Dosage: 30 TWICE DAILY TAKEN BY MOUTH
     Route: 048
     Dates: start: 20130609, end: 20130619

REACTIONS (7)
  - Tendon rupture [None]
  - Tendon pain [None]
  - Arthralgia [None]
  - Headache [None]
  - Muscle twitching [None]
  - Fatigue [None]
  - Product quality issue [None]
